FAERS Safety Report 19654630 (Version 2)
Quarter: 2021Q4

REPORT INFORMATION
  Report Type: Report from Study
  Country: US (occurrence: US)
  Receive Date: 20210804
  Receipt Date: 20211019
  Transmission Date: 20220303
  Serious: Yes (Hospitalization, Other)
  Sender: FDA-Public Use
  Company Number: US-SANOFI-00700854

PATIENT
  Age: 65 Year
  Sex: Female

DRUGS (8)
  1. TERIFLUNOMIDE [Suspect]
     Active Substance: TERIFLUNOMIDE
     Indication: Multiple sclerosis
     Dosage: 14 MG, QD
     Route: 048
     Dates: start: 20201027
  2. LYRICA [Concomitant]
     Active Substance: PREGABALIN
     Dosage: UNK
  3. GABAPENTIN [Concomitant]
     Active Substance: GABAPENTIN
     Dosage: UNK
  4. SAVELLA [Concomitant]
     Active Substance: MILNACIPRAN HYDROCHLORIDE
  5. CYMBALTA [Concomitant]
     Active Substance: DULOXETINE HYDROCHLORIDE
     Dosage: UNK
  6. BACLOFEN [Concomitant]
     Active Substance: BACLOFEN
     Indication: Muscle relaxant therapy
     Dosage: UNK
     Dates: start: 202105
  7. FIBER [Concomitant]
     Active Substance: PSYLLIUM HUSK
  8. CHOLESTYRAMINE [Concomitant]
     Active Substance: CHOLESTYRAMINE

REACTIONS (21)
  - Urinary tract infection [Not Recovered/Not Resolved]
  - Streptococcal sepsis [Unknown]
  - Peripheral swelling [Recovered/Resolved]
  - Multiple sclerosis [Unknown]
  - Middle insomnia [Unknown]
  - Panic attack [Unknown]
  - Burning sensation [Unknown]
  - Arthritis [Unknown]
  - Stenosis [Unknown]
  - Intervertebral disc disorder [Unknown]
  - Nervous system disorder [Unknown]
  - Sleep apnoea syndrome [Unknown]
  - Rash macular [Unknown]
  - Rash pruritic [Recovered/Resolved]
  - Erythema [Recovered/Resolved]
  - Confusional state [Unknown]
  - Blood pressure decreased [Unknown]
  - Pain in extremity [Unknown]
  - Condition aggravated [Unknown]
  - Paraesthesia [Unknown]
  - Diarrhoea [Unknown]

NARRATIVE: CASE EVENT DATE: 20210501
